FAERS Safety Report 8800536 (Version 2)
Quarter: 2015Q1

REPORT INFORMATION
  Report Type: Report from Study
  Country: US (occurrence: US)
  Receive Date: 20120921
  Receipt Date: 20150316
  Transmission Date: 20150721
  Serious: Yes (Death)
  Sender: FDA-Public Use
  Company Number: US-ROCHE-1123674

PATIENT
  Age: 64 Year
  Sex: Male

DRUGS (11)
  1. ALOXI [Concomitant]
     Active Substance: PALONOSETRON HYDROCHLORIDE
     Route: 042
  2. BENADRYL [Concomitant]
     Active Substance: DIPHENHYDRAMINE HYDROCHLORIDE
     Route: 042
  3. ARANESP [Concomitant]
     Active Substance: DARBEPOETIN ALFA
     Route: 042
  4. AVASTIN [Suspect]
     Active Substance: BEVACIZUMAB
     Indication: MALIGNANT MELANOMA
     Route: 042
     Dates: start: 20071031
  5. DECADRON [Concomitant]
     Active Substance: DEXAMETHASONE
     Route: 042
  6. TAXOL [Concomitant]
     Active Substance: PACLITAXEL
     Route: 042
  7. NEUPOGEN [Concomitant]
     Active Substance: FILGRASTIM
     Route: 042
  8. TAGAMET [Concomitant]
     Active Substance: CIMETIDINE
     Route: 042
  9. ATIVAN [Concomitant]
     Active Substance: LORAZEPAM
     Route: 042
  10. DEXA [Concomitant]
     Route: 042
  11. CARBOPLATIN. [Concomitant]
     Active Substance: CARBOPLATIN
     Route: 042

REACTIONS (2)
  - Off label use [Unknown]
  - Death [Fatal]

NARRATIVE: CASE EVENT DATE: 200801
